FAERS Safety Report 7433140-3 (Version None)
Quarter: 2011Q2

REPORT INFORMATION
  Report Type: 
  Country: None (occurrence: None)
  Receive Date: 20110422
  Receipt Date: 20110408
  Transmission Date: 20111010
  Serious: Yes (Hospitalization)
  Sender: FDA-Public Use
  Company Number: FR-PFIZER INC-2010067774

PATIENT
  Age: 53 Year
  Sex: Female
  Weight: 60 kg

DRUGS (14)
  1. CAMPTOSAR [Suspect]
     Dosage: 290 MG/M2, CYCLIC
     Route: 041
     Dates: start: 20090219, end: 20090527
  2. CALCIUM FOLINATE [Suspect]
     Dosage: 520 MG/M2, CYCLIC
     Route: 042
     Dates: start: 20090514, end: 20090527
  3. AVASTIN [Suspect]
     Indication: COLON CANCER
     Dosage: UNK
     Dates: start: 20060101, end: 20061001
  4. AVASTIN [Suspect]
     Dosage: 300 MG/M2, CYCLIC
     Route: 041
     Dates: start: 20090219, end: 20090514
  5. CALCIUM FOLINATE [Suspect]
     Dosage: 640 MG/M2, CYCLIC
     Route: 041
     Dates: start: 20090219, end: 20090429
  6. FLUOROURACIL [Suspect]
     Dosage: 3080 MG/M2, CYCLIC
     Route: 041
     Dates: start: 20090514, end: 20090527
  7. ZOPHREN [Suspect]
     Indication: VOMITING
     Dosage: 8 MG/M2, CYCLIC
     Route: 048
     Dates: start: 20090219, end: 20090527
  8. CALCIUM FOLINATE [Suspect]
     Indication: COLON CANCER
     Dosage: UNK
     Dates: start: 20060101, end: 20061001
  9. CAMPTOSAR [Suspect]
     Indication: COLON CANCER
     Dosage: UNK
     Dates: start: 20060101, end: 20061001
  10. SOLU-MEDROL [Suspect]
     Indication: VOMITING
     Dosage: 60 MG/M2, CYCLIC
     Route: 041
     Dates: start: 20090219, end: 20090527
  11. FLUOROURACIL [Suspect]
     Dosage: 640 MG/M2, CYCLIC
     Route: 040
     Dates: start: 20090219, end: 20090429
  12. FLUOROURACIL [Suspect]
     Dosage: 520 MG/M2, CYCLIC
     Route: 040
     Dates: start: 20090514, end: 20090527
  13. FLUOROURACIL [Suspect]
     Indication: COLON CANCER
     Dosage: UNK
     Dates: start: 20060101, end: 20061001
  14. FLUOROURACIL [Suspect]
     Dosage: 3860 MG/M2, CYCLIC
     Route: 041
     Dates: start: 20090219, end: 20090429

REACTIONS (3)
  - PALMAR-PLANTAR ERYTHRODYSAESTHESIA SYNDROME [None]
  - DIARRHOEA [None]
  - EPISTAXIS [None]
